FAERS Safety Report 25904235 (Version 1)
Quarter: 2025Q4

REPORT INFORMATION
  Report Type: Report from Study
  Country: GB (occurrence: GB)
  Receive Date: 20251010
  Receipt Date: 20251010
  Transmission Date: 20260118
  Serious: Yes (Other)
  Sender: ABBVIE
  Company Number: GB-ABBVIE-6493469

PATIENT
  Sex: Female

DRUGS (1)
  1. HUMIRA [Suspect]
     Active Substance: ADALIMUMAB
     Indication: Rheumatoid arthritis
     Dosage: STRENGTH: HUMIRA 40MG/0.4ML?2 PRE-FILLED DISPOSABLE INJECTION?DOSE FORM : SOLUTION FOR INJECTION ...
     Route: 058

REACTIONS (1)
  - Deafness [Unknown]
